FAERS Safety Report 15534059 (Version 1)
Quarter: 2018Q4

REPORT INFORMATION
  Report Type: Spontaneous
  Country: IN (occurrence: IN)
  Receive Date: 20181019
  Receipt Date: 20181019
  Transmission Date: 20190205
  Serious: Yes (Death, Hospitalization)
  Sender: FDA-Public Use
  Company Number: IN-MYLANLABS-2018M1076722

PATIENT
  Age: 55 Year
  Sex: Male

DRUGS (9)
  1. TORASEMIDE [Suspect]
     Active Substance: TORSEMIDE
     Indication: MYASTHENIA GRAVIS
     Route: 065
  2. AZATHIOPRINE. [Suspect]
     Active Substance: AZATHIOPRINE
     Indication: MYASTHENIA GRAVIS
     Route: 065
  3. CLOPIDOGREL [Suspect]
     Active Substance: CLOPIDOGREL BISULFATE
     Indication: MYASTHENIA GRAVIS
     Route: 065
  4. ASPIRIN                            /00002701/ [Suspect]
     Active Substance: ASPIRIN
     Indication: MYASTHENIA GRAVIS
     Route: 065
  5. PREDNISOLONE. [Suspect]
     Active Substance: PREDNISOLONE
     Indication: MYASTHENIA GRAVIS
     Dosage: WITH A WEEKLY DOSE INCREMENT OF 5MG
     Route: 065
  6. ROSUVASTATIN. [Suspect]
     Active Substance: ROSUVASTATIN
     Indication: MYASTHENIA GRAVIS
     Route: 065
  7. PYRIDOSTIGMINE [Suspect]
     Active Substance: PYRIDOSTIGMINE
     Indication: MYASTHENIA GRAVIS
     Route: 065
  8. PYRIDOSTIGMINE [Suspect]
     Active Substance: PYRIDOSTIGMINE
     Route: 048
  9. NEOSTIGMINE. [Concomitant]
     Active Substance: NEOSTIGMINE METHYLSULFATE
     Indication: MYASTHENIA GRAVIS
     Route: 065

REACTIONS (12)
  - Haematuria [Unknown]
  - Bone marrow failure [Fatal]
  - Asthenia [Unknown]
  - Myasthenia gravis [Unknown]
  - Headache [Unknown]
  - Nausea [Unknown]
  - Cardiac arrest [Fatal]
  - Diarrhoea [Unknown]
  - Dizziness [Unknown]
  - Haematochezia [Unknown]
  - Hypovolaemic shock [Fatal]
  - Haemorrhage [Unknown]
